FAERS Safety Report 6468063-X (Version None)
Quarter: 2009Q4

REPORT INFORMATION
  Report Type: 
  Country: None (occurrence: None)
  Receive Date: 20091202
  Receipt Date: 20081122
  Transmission Date: 20100525
  Serious: No
  Sender: FDA-Public Use
  Company Number: US-AMGEN-KDL320410

PATIENT
  Sex: Male

DRUGS (1)
  1. ENBREL [Suspect]
     Indication: ANKYLOSING SPONDYLITIS
     Route: 058
     Dates: start: 20080501

REACTIONS (6)
  - ASTHMA [None]
  - COUGH [None]
  - NAUSEA [None]
  - OROPHARYNGEAL PAIN [None]
  - PAIN [None]
  - PYREXIA [None]
